FAERS Safety Report 17809155 (Version 1)
Quarter: 2020Q2

REPORT INFORMATION
  Report Type: Report from Study
  Country: US (occurrence: US)
  Receive Date: 20200520
  Receipt Date: 20200520
  Transmission Date: 20200714
  Serious: Yes (Life-Threatening, Hospitalization, Other)
  Sender: FDA-Public Use
  Company Number: US-ALEXION PHARMACEUTICALS INC.-A202006849

PATIENT
  Sex: Female

DRUGS (1)
  1. STRENSIQ [Suspect]
     Active Substance: ASFOTASE ALFA
     Indication: HYPOPHOSPHATASIA
     Dosage: UNK
     Route: 065

REACTIONS (20)
  - Pyrexia [Recovering/Resolving]
  - Hypoaesthesia [Unknown]
  - Dyspnoea [Recovering/Resolving]
  - Chest pain [Recovering/Resolving]
  - Hypersensitivity [Unknown]
  - Blood pressure increased [Recovering/Resolving]
  - Blood pressure decreased [Recovering/Resolving]
  - Cough [Recovering/Resolving]
  - Erythema [Recovering/Resolving]
  - Malaise [Unknown]
  - Neck pain [Recovering/Resolving]
  - Lethargy [Unknown]
  - Fatigue [Recovering/Resolving]
  - Syncope [Recovering/Resolving]
  - Cyanosis [Unknown]
  - Infusion related reaction [Recovering/Resolving]
  - Abdominal pain upper [Recovering/Resolving]
  - Vomiting [Recovering/Resolving]
  - Dizziness [Unknown]
  - Headache [Recovering/Resolving]

NARRATIVE: CASE EVENT DATE: 2020
